FAERS Safety Report 8367274-6 (Version None)
Quarter: 2012Q2

REPORT INFORMATION
  Report Type: 
  Country: None (occurrence: None)
  Receive Date: 20120517
  Receipt Date: 20120510
  Transmission Date: 20120825
  Serious: Yes (Other)
  Sender: FDA-Public Use
  Company Number: US-BRISTOL-MYERS SQUIBB COMPANY-16584526

PATIENT
  Sex: Male

DRUGS (2)
  1. METFORMIN HCL [Suspect]
     Dosage: FLEXPEN
  2. LEVEMIR [Suspect]

REACTIONS (5)
  - HYPERHIDROSIS [None]
  - DELUSION [None]
  - EUPHORIC MOOD [None]
  - DIZZINESS [None]
  - CHILLS [None]
